FAERS Safety Report 6867573-0 (Version None)
Quarter: 2010Q3

REPORT INFORMATION
  Report Type: 
  Country: None (occurrence: None)
  Receive Date: 20100722
  Receipt Date: 20100719
  Transmission Date: 20110219
  Serious: Yes (Life-Threatening)
  Sender: FDA-Public Use
  Company Number: GB-PURDUE-GBR-2010-0006825

PATIENT
  Age: 72 Year
  Sex: Female

DRUGS (14)
  1. MS CONTIN [Suspect]
     Indication: PAIN
     Dosage: 20 MG, SINGLE
     Route: 065
     Dates: start: 20100710, end: 20100710
  2. MORPHINE [Suspect]
     Indication: PAIN
     Dosage: 2.5 MG, SINGLE
     Route: 058
     Dates: start: 20100710, end: 20100710
  3. ORAMORPH SR [Suspect]
     Indication: PAIN
     Dosage: UNK
     Route: 065
     Dates: start: 20100710, end: 20100710
  4. TRAMADOL HCL [Suspect]
     Indication: PAIN
     Dosage: 50 MG, PRN
     Route: 048
     Dates: start: 20100710, end: 20100710
  5. ATORVASTATIN [Concomitant]
  6. BUMETANIDE [Concomitant]
  7. FOLIC ACID [Concomitant]
  8. GLICLAZIDE [Concomitant]
  9. LISINOPRIL [Concomitant]
  10. MIRTAZAPINE [Concomitant]
  11. NOVOMIX                            /01475801/ [Concomitant]
  12. NOVORAPID [Concomitant]
  13. PARACETAMOL [Concomitant]
  14. PRAZOSIN HYDROCHLORIDE [Concomitant]

REACTIONS (4)
  - CONDITION AGGRAVATED [None]
  - NARCOTIC INTOXICATION [None]
  - RENAL FAILURE CHRONIC [None]
  - RESPIRATORY ARREST [None]
